FAERS Safety Report 4641436-3 (Version None)
Quarter: 2005Q2

REPORT INFORMATION
  Report Type: 
  Country: None (occurrence: None)
  Receive Date: 20050420
  Receipt Date: 20050420
  Transmission Date: 20051028
  Serious: Yes (Death)
  Sender: FDA-Public Use
  Company Number: None

PATIENT
  Age: 81 Year
  Sex: Female
  Weight: 85 kg

DRUGS (14)
  1. LINEZOLID IV [Suspect]
     Indication: PNEUMONIA STAPHYLOCOCCAL
     Dosage: 600MG  Q12H INTRAVENOUS
     Route: 042
     Dates: start: 20050218, end: 20050303
  2. VANCOMYCIN [Concomitant]
  3. CASPOFUNGIN [Concomitant]
  4. FUROSEMIDE [Concomitant]
  5. HEPARIN [Concomitant]
  6. HYDROCORTISONE [Concomitant]
  7. INSULIN [Concomitant]
  8. LORAZEPAM [Concomitant]
  9. LEVOFLOXACIN [Concomitant]
  10. METOPROLOL TARTRATE [Concomitant]
  11. RISPERIDONE [Concomitant]
  12. AZTREONAM [Concomitant]
  13. DIGOXIN [Concomitant]
  14. DILTIAZEM [Concomitant]

REACTIONS (2)
  - NEUTROPENIA [None]
  - THROMBOCYTOPENIA [None]
